FAERS Safety Report 22120658 (Version 3)
Quarter: 2023Q2

REPORT INFORMATION
  Report Type: Report from Study
  Country: US (occurrence: US)
  Receive Date: 20230321
  Receipt Date: 20230626
  Transmission Date: 20230721
  Serious: Yes (Hospitalization, Other)
  Sender: FDA-Public Use
  Company Number: US-002147023-NVSC2023US059753

PATIENT
  Sex: Female

DRUGS (2)
  1. ENTRESTO [Suspect]
     Active Substance: SACUBITRIL\VALSARTAN
     Indication: Product used for unknown indication
     Dosage: UNK
     Route: 065
     Dates: start: 202206
  2. AMIODARONE [Suspect]
     Active Substance: AMIODARONE
     Indication: Product used for unknown indication
     Dosage: UNK
     Route: 065

REACTIONS (10)
  - Colonic abscess [Unknown]
  - Renal failure [Recovering/Resolving]
  - Gallbladder abscess [Recovering/Resolving]
  - Haematological infection [Recovering/Resolving]
  - Memory impairment [Recovering/Resolving]
  - Throat clearing [Unknown]
  - Seasonal allergy [Unknown]
  - Swelling [Unknown]
  - Dyspnoea [Unknown]
  - Blood pressure decreased [Recovering/Resolving]
